FAERS Safety Report 4826929-8 (Version None)
Quarter: 2005Q4

REPORT INFORMATION
  Report Type: 
  Country: None (occurrence: None)
  Receive Date: 20051014
  Receipt Date: 20050722
  Transmission Date: 20060501
  Serious: No
  Sender: FDA-Public Use
  Company Number: 2005SP002040

PATIENT
  Age: 63 Year
  Sex: Female
  Weight: 50.8029 kg

DRUGS (17)
  1. LUNESTA [Suspect]
     Indication: INSOMNIA
     Dosage: HS ; ORAL
     Dates: start: 20050101
  2. MIRALAX [Concomitant]
  3. FOSAMAX [Concomitant]
  4. NASACORT [Concomitant]
  5. ALLEGRA [Concomitant]
  6. ALLEGRA [Concomitant]
  7. RESTASIS [Concomitant]
  8. DAYPRO [Concomitant]
  9. DETROL [Concomitant]
  10. CITRACAL [Concomitant]
  11. GLUCOSAMINE W/ CHONDROITIN [Concomitant]
  12. CENTRUM SILVER [Concomitant]
  13. ASCORBIC ACID [Concomitant]
  14. VITAMIN E [Concomitant]
  15. COLACE [Concomitant]
  16. COLACE LAXATIVE [Concomitant]
  17. AMBIEN [Concomitant]

REACTIONS (1)
  - INSOMNIA [None]
